FAERS Safety Report 7325602-4 (Version None)
Quarter: 2011Q1

REPORT INFORMATION
  Report Type: 
  Country: None (occurrence: None)
  Receive Date: 20110302
  Receipt Date: 20110218
  Transmission Date: 20110831
  Serious: Yes (Hospitalization, Other)
  Sender: FDA-Public Use
  Company Number: US-ELI_LILLY_AND_COMPANY-US201006003663

PATIENT
  Sex: Female

DRUGS (15)
  1. PRILOSEC [Concomitant]
  2. VIACTIV /USA/ [Concomitant]
  3. COQ10 [Concomitant]
  4. FORTEO [Suspect]
     Indication: OSTEOPOROSIS
  5. FORTEO [Suspect]
     Dosage: 20 UG, DAILY (1/D)
     Route: 058
  6. FORTEO [Suspect]
     Dosage: 20 UG, DAILY (1/D)
     Route: 058
     Dates: end: 20110215
  7. FORTEO [Suspect]
     Dosage: 20 UG, DAILY (1/D)
     Route: 058
  8. PREDNISONE [Concomitant]
  9. TRIAMTERENE [Concomitant]
  10. MOBIC [Concomitant]
  11. ADVAIR DISKUS 100/50 [Concomitant]
  12. NASACORT [Concomitant]
  13. FORTEO [Suspect]
     Dosage: 20 UG, DAILY (1/D)
     Route: 058
  14. ASPIRIN [Concomitant]
     Dosage: 81 MG, UNK
  15. MULTI-VITAMIN [Concomitant]

REACTIONS (12)
  - HEAD INJURY [None]
  - INJECTION SITE HAEMATOMA [None]
  - MUSCULAR WEAKNESS [None]
  - EXOSTOSIS [None]
  - MALAISE [None]
  - TRANSIENT ISCHAEMIC ATTACK [None]
  - ARTHROPATHY [None]
  - FALL [None]
  - INJECTION SITE ERYTHEMA [None]
  - BALANCE DISORDER [None]
  - HAEMATOMA [None]
  - PAIN IN EXTREMITY [None]
